FAERS Safety Report 9387257 (Version 2)
Quarter: 2013Q3

REPORT INFORMATION
  Report Type: Spontaneous
  Country: JP (occurrence: JP)
  Receive Date: 20130708
  Receipt Date: 20130715
  Transmission Date: 20140515
  Serious: Yes (Death)
  Sender: FDA-Public Use
  Company Number: JP-JNJFOC-20130407624

PATIENT
  Sex: 0

DRUGS (2)
  1. DUROTEP MT [Suspect]
     Indication: CANCER PAIN
     Route: 062
     Dates: start: 201304, end: 201305
  2. FENTANYL CITRATE [Concomitant]
     Indication: CANCER PAIN
     Dosage: RESCUE DOSE
     Route: 065

REACTIONS (3)
  - Malignant neoplasm progression [Fatal]
  - Analgesic drug level decreased [Unknown]
  - Pain [Unknown]
